FAERS Safety Report 11032124 (Version 1)
Quarter: 2015Q2

REPORT INFORMATION
  Report Type: Spontaneous
  Country: US (occurrence: None)
  Receive Date: 20150414
  Receipt Date: 20150414
  Transmission Date: 20150821
  Serious: Yes (Hospitalization)
  Sender: FDA-Public Use
  Company Number: 2015BV000009

PATIENT
  Age: 9 Year
  Sex: Male

DRUGS (1)
  1. CLINDAMYCIN [Suspect]
     Active Substance: CLINDAMYCIN\CLINDAMYCIN PHOSPHATE
     Indication: CELLULITIS

REACTIONS (4)
  - Anaemia [None]
  - Acute generalised exanthematous pustulosis [None]
  - Toxic shock syndrome [None]
  - Hypoalbuminaemia [None]
